FAERS Safety Report 9797658 (Version 1)
Quarter: 2013Q4

REPORT INFORMATION
  Report Type: Spontaneous
  Country: SE (occurrence: None)
  Receive Date: 20131231
  Receipt Date: 20131231
  Transmission Date: 20140711
  Serious: Yes (Hospitalization)
  Sender: FDA-Public Use
  Company Number: SE-20130012

PATIENT
  Age: 37 Year
  Sex: Male

DRUGS (1)
  1. DOTAREM (GADOTERIC ACID) [Suspect]
     Indication: NUCLEAR MAGNETIC RESONANCE IMAGING
     Dates: start: 20131021, end: 20131021

REACTIONS (8)
  - Headache [None]
  - Eye irritation [None]
  - Eye pruritus [None]
  - Ocular hyperaemia [None]
  - Tinnitus [None]
  - Nausea [None]
  - Testicular pain [None]
  - Diarrhoea [None]
